FAERS Safety Report 5669357-8 (Version None)
Quarter: 2008Q1

REPORT INFORMATION
  Report Type: 
  Country: None (occurrence: None)
  Receive Date: 20080317
  Receipt Date: 20080311
  Transmission Date: 20080703
  Serious: Yes (Death)
  Sender: FDA-Public Use
  Company Number: ES-MERCK-0802ESP00038

PATIENT

DRUGS (1)
  1. MONTELUKAST SODIUM [Suspect]
     Route: 048

REACTIONS (1)
  - CEREBROVASCULAR DISORDER [None]
